FAERS Safety Report 4973558-1 (Version None)
Quarter: 2006Q2

REPORT INFORMATION
  Report Type: 
  Country: None (occurrence: None)
  Receive Date: 20060414
  Receipt Date: 20060404
  Transmission Date: 20061013
  Serious: Yes (Disabling)
  Sender: FDA-Public Use
  Company Number: US-BRISTOL-MYERS SQUIBB COMPANY-13335708

PATIENT
  Sex: Male
  Weight: 87 kg

DRUGS (6)
  1. ZERIT [Suspect]
     Indication: HIV INFECTION
     Dosage: THERAPY START DATE: 1997 OR 1998
     Dates: end: 20030801
  2. VIDEX [Suspect]
     Indication: HIV INFECTION
     Dosage: THERAPY START DATE: 1997 OR 1998
  3. VIRACEPT [Suspect]
     Indication: HIV INFECTION
     Dosage: THERAPY START DATE: 1997 OR 1998
  4. EPIVIR [Suspect]
     Indication: HIV INFECTION
  5. VIREAD [Suspect]
     Indication: HIV INFECTION
  6. CENTRUM [Concomitant]

REACTIONS (7)
  - AMNESIA [None]
  - BALANCE DISORDER [None]
  - CHEST PAIN [None]
  - DISORIENTATION [None]
  - FATIGUE [None]
  - SOMNOLENCE [None]
  - VISUAL DISTURBANCE [None]
